FAERS Safety Report 8465852-7 (Version None)
Quarter: 2012Q2

REPORT INFORMATION
  Report Type: 
  Country: None (occurrence: None)
  Receive Date: 20120626
  Receipt Date: 20120620
  Transmission Date: 20120825
  Serious: Yes (Death, Life-Threatening, Hospitalization, Other)
  Sender: FDA-Public Use
  Company Number: US-AMGEN-US346834

PATIENT
  Age: 60 Year
  Sex: Male

DRUGS (46)
  1. NEULASTA [Suspect]
     Indication: PRODUCT USED FOR UNKNOWN INDICATION
     Dosage: 6 MG, UNK
  2. IMMUNOGLOBULINS [Concomitant]
     Dosage: UNK UNK, Q4WK
     Route: 042
     Dates: start: 19990101
  3. NAPROXEN [Concomitant]
     Dosage: UNK
     Route: 048
  4. PROCHLORPERAZINE MALEATE [Concomitant]
     Dosage: 10 MG, PRN
  5. DAUNORUBICIN HCL [Concomitant]
  6. NPLATE [Suspect]
     Indication: IDIOPATHIC THROMBOCYTOPENIC PURPURA
     Dosage: UNK
     Dates: start: 20080924, end: 20081207
  7. NPLATE [Suspect]
     Dosage: UNK
  8. ARANESP [Suspect]
     Indication: PRODUCT USED FOR UNKNOWN INDICATION
     Dosage: UNK
     Dates: start: 20081017
  9. DEXAMETHASONE [Concomitant]
     Dosage: 4 MG, UNK
     Dates: start: 20070101
  10. MULTIVITAMIN                       /00097801/ [Concomitant]
  11. FLUTICASONE PROPIONATE [Concomitant]
     Dosage: 50 MUG, UNK
     Route: 045
  12. AZITHROMYCIN [Concomitant]
     Dosage: 250 MG, UNK
  13. ALPRAZOLAM [Concomitant]
     Dosage: 1 MG, TID
  14. PREDNISONE [Concomitant]
     Dosage: 20 MG, UNK
  15. ONDANSETRON (ZOFRAN) [Concomitant]
     Dosage: UNK
  16. FLUDARABINE PHOSPHATE [Concomitant]
  17. ANTI-THYMOCYTE GLOBULIN NOS [Concomitant]
  18. NPLATE [Suspect]
     Dosage: UNK
  19. NPLATE [Suspect]
     Dosage: UNK
  20. RITUXIMAB [Concomitant]
     Dosage: UNK
  21. DECADRON [Concomitant]
     Dosage: UNK
  22. TRICOR [Concomitant]
     Dosage: 145 MG, UNK
  23. BLOOD AND RELATED PRODUCTS [Concomitant]
  24. PROGRAF [Concomitant]
  25. CARBOPLATIN [Concomitant]
     Dosage: UNK
  26. IFEX [Concomitant]
     Dosage: UNK
  27. MESNA [Concomitant]
     Dosage: UNK
  28. METHOTREXATE [Concomitant]
  29. ALOXI [Concomitant]
     Dosage: UNK
  30. ETOPOSIDE [Concomitant]
     Dosage: UNK
  31. CYTARABINE [Concomitant]
     Dosage: 2 G, UNK
  32. POTASSIUM CHLORIDE [Concomitant]
     Dosage: 10 MEQ, UNK
  33. METFORMIN HCL [Concomitant]
     Dosage: 500 MG, BID
  34. BUSULFAN [Concomitant]
  35. NPLATE [Suspect]
     Dosage: UNK
  36. LIPITOR [Concomitant]
     Dosage: 10 MG, UNK
  37. VALTREX [Concomitant]
     Dosage: 1 G, UNK
  38. PENTAMIDINE ISETHIONATE [Concomitant]
  39. CELLCEPT [Concomitant]
  40. NPLATE [Suspect]
     Dosage: UNK
     Dates: start: 20080924, end: 20081207
  41. BENADRYL [Concomitant]
     Dosage: UNK
     Route: 048
  42. CISPLATIN [Concomitant]
  43. MUCINEX [Concomitant]
     Dosage: 600 MG, UNK
  44. DETROL LA [Concomitant]
     Dosage: 4 MG, QID
  45. TRIAMTERENE AND HYDROCHLOROTHIAZID [Concomitant]
     Dosage: UNK UNK, QID
  46. IVIGLOB-EX [Concomitant]

REACTIONS (13)
  - NEOPLASM MALIGNANT [None]
  - ADRENAL INSUFFICIENCY [None]
  - NEUROTOXICITY [None]
  - CARBON DIOXIDE DECREASED [None]
  - MYELODYSPLASTIC SYNDROME [None]
  - ACUTE MYELOID LEUKAEMIA [None]
  - DYSPNOEA [None]
  - GRAFT LOSS [None]
  - MYELITIS [None]
  - ORTHOSTATIC HYPOTENSION [None]
  - BRAIN OEDEMA [None]
  - DEATH [None]
  - JUGULAR VEIN THROMBOSIS [None]
